FAERS Safety Report 24206404 (Version 2)
Quarter: 2025Q4

REPORT INFORMATION
  Report Type: Spontaneous
  Country: EU (occurrence: EU)
  Receive Date: 20240813
  Receipt Date: 20251009
  Transmission Date: 20260118
  Serious: Yes (Hospitalization, Other)
  Sender: NOVARTIS
  Company Number: EU-GlaxoSmithKline-B0717568A

PATIENT
  Age: 28 Year
  Sex: Male

DRUGS (8)
  1. CYCLOSPORINE [Suspect]
     Active Substance: CYCLOSPORINE
     Indication: Neutrophilic dermatosis
     Dosage: 200 MG, QD, (100MG TWICE PER DAY)
     Route: 065
  2. CYCLOSPORINE [Suspect]
     Active Substance: CYCLOSPORINE
     Dosage: 250 MG, QD, (100MG TWICE PER DAY; IMPLICATED IN THE ONSET OF RENAL IMPAIRMENT))
     Route: 065
  3. PREDNISONE [Suspect]
     Active Substance: PREDNISONE
     Indication: Acute febrile neutrophilic dermatosis
     Dosage: 1 MG/KG, QD PER DAY
     Route: 065
  4. PREDNISONE [Suspect]
     Active Substance: PREDNISONE
     Dosage: 30 MG, QD, IMPLICATED IN THE ONSET OF FEMORAL HEAD NECROSIS
     Route: 065
  5. AZATHIOPRINE [Suspect]
     Active Substance: AZATHIOPRINE
     Indication: Neutrophilic dermatosis
     Dosage: 100 MG, QD, (50MG TWICE PER DAY)
     Route: 065
  6. CALCIUM CARBONATE [Concomitant]
     Active Substance: CALCIUM CARBONATE
     Indication: Product used for unknown indication
     Dosage: UNK
     Route: 065
  7. ALENDRONIC ACID [Concomitant]
     Active Substance: ALENDRONIC ACID
     Indication: Product used for unknown indication
     Dosage: UNK
     Route: 065
  8. DAPSONE [Concomitant]
     Active Substance: DAPSONE
     Indication: Neutrophilic dermatosis
     Dosage: UNK
     Route: 065

REACTIONS (6)
  - Myelosuppression [Recovering/Resolving]
  - Osteonecrosis [Unknown]
  - Renal impairment [Unknown]
  - Osteopenia [Unknown]
  - Osteoporosis [Unknown]
  - Disease progression [Recovering/Resolving]
